FAERS Safety Report 6137932-2 (Version None)
Quarter: 2009Q1

REPORT INFORMATION
  Report Type: 
  Country: None (occurrence: None)
  Receive Date: 20090331
  Receipt Date: 20090319
  Transmission Date: 20090719
  Serious: Yes (Hospitalization, Other)
  Sender: FDA-Public Use
  Company Number: US-PFIZER INC-2008024517

PATIENT
  Sex: Female

DRUGS (1)
  1. DILANTIN-125 [Suspect]
     Indication: CONVULSION
     Route: 048
     Dates: start: 20070209

REACTIONS (9)
  - DEPRESSION [None]
  - INSOMNIA [None]
  - MIDDLE INSOMNIA [None]
  - NIGHTMARE [None]
  - PAIN [None]
  - PANIC DISORDER [None]
  - SCAR [None]
  - STEVENS-JOHNSON SYNDROME [None]
  - TOXIC EPIDERMAL NECROLYSIS [None]
